FAERS Safety Report 10744347 (Version 1)
Quarter: 2015Q1

REPORT INFORMATION
  Report Type: Spontaneous
  Country: US (occurrence: US)
  Receive Date: 20150128
  Receipt Date: 20150128
  Transmission Date: 20150721
  Serious: No
  Sender: FDA-Public Use
  Company Number: US-PFIZER INC-2015029774

PATIENT
  Age: 56 Year
  Sex: Female

DRUGS (1)
  1. DETROL LA [Suspect]
     Active Substance: TOLTERODINE TARTRATE
     Indication: BLADDER DISORDER
     Dosage: 4 MG, 1X/DAY
     Route: 048

REACTIONS (1)
  - Drug ineffective [Not Recovered/Not Resolved]
